FAERS Safety Report 16935360 (Version 3)
Quarter: 2019Q4

REPORT INFORMATION
  Report Type: Report from Study
  Country: JP (occurrence: JP)
  Receive Date: 20191018
  Receipt Date: 20191110
  Transmission Date: 20200122
  Serious: Yes (Hospitalization)
  Sender: FDA-Public Use
  Company Number: NVSC2019JP002868

PATIENT
  Age: 58 Year
  Sex: Male
  Weight: 57 kg

DRUGS (12)
  1. VONOPRAZAN FUMARATE [Concomitant]
     Active Substance: VONOPRAZAN FUMURATE
     Indication: PROPHYLAXIS
     Dosage: UNK
     Route: 065
     Dates: start: 20190709
  2. ACETAMINOPHEN. [Concomitant]
     Active Substance: ACETAMINOPHEN
     Indication: ANALGESIC THERAPY
     Dosage: UNK
     Route: 065
     Dates: start: 20190709
  3. CILNIDIPINE [Concomitant]
     Active Substance: CILNIDIPINE
     Indication: HYPERTENSION
     Dosage: UNK
     Route: 065
     Dates: start: 20190821, end: 20190917
  4. METHYLPREDNISOLONE. [Suspect]
     Active Substance: METHYLPREDNISOLONE
     Indication: IMMUNOSUPPRESSION
     Dosage: UNK
     Route: 065
     Dates: start: 20190806
  5. DIPYRIDAMOLE. [Concomitant]
     Active Substance: DIPYRIDAMOLE
     Indication: PROTEINURIA
     Dosage: UNK
     Route: 065
     Dates: start: 20190709
  6. CFZ533SC [Suspect]
     Active Substance: ISCALIMAB
     Indication: RENAL TRANSPLANT
     Dosage: 4 ML EVERY 2 WEEKS
     Route: 042
     Dates: start: 20190708
  7. BETAMETHASONE VALERATE. [Concomitant]
     Active Substance: BETAMETHASONE VALERATE
     Indication: DERMATITIS ATOPIC
     Dosage: UNK
     Route: 065
     Dates: start: 19971225
  8. POVIDONE IOD [Concomitant]
     Indication: PROPHYLAXIS
     Dosage: UNK
     Route: 065
     Dates: start: 20190705
  9. AMPHOTERICIN [Concomitant]
     Active Substance: AMPHOTERICIN B
     Indication: PROPHYLAXIS
     Dosage: UNK
     Route: 065
     Dates: start: 20190705
  10. DOXAZOSIN MESILATE [Concomitant]
     Active Substance: DOXAZOSIN MESYLATE
     Indication: HYPERTENSION
     Dosage: UNK
     Route: 065
     Dates: start: 20190904, end: 20190917
  11. MYCOPHENOLATE MOFETIL. [Suspect]
     Active Substance: MYCOPHENOLATE MOFETIL
     Indication: RENAL TRANSPLANT
     Dosage: 500 MG, BID
     Route: 048
     Dates: start: 20190709
  12. SULFAMETHOXAZOLE [Concomitant]
     Active Substance: SULFAMETHOXAZOLE
     Indication: PROPHYLAXIS
     Dosage: UNK
     Route: 065
     Dates: start: 20190809

REACTIONS (1)
  - Cytomegalovirus infection [Recovered/Resolved]

NARRATIVE: CASE EVENT DATE: 20191002
